FAERS Safety Report 6077957-9 (Version None)
Quarter: 2009Q1

REPORT INFORMATION
  Report Type: 
  Country: None (occurrence: None)
  Receive Date: 20090213
  Receipt Date: 20090209
  Transmission Date: 20090719
  Serious: Yes (Hospitalization)
  Sender: FDA-Public Use
  Company Number: US-KINGPHARMUSA00001-K200900123

PATIENT
  Age: 44 Year
  Sex: Female

DRUGS (2)
  1. SKELAXIN [Suspect]
     Dosage: UNK
     Route: 048
     Dates: start: 20060101, end: 20060101
  2. CELEBREX [Concomitant]

REACTIONS (2)
  - DRY EYE [None]
  - STEVENS-JOHNSON SYNDROME [None]
